FAERS Safety Report 7412438-9 (Version None)
Quarter: 2011Q2

REPORT INFORMATION
  Report Type: 
  Country: None (occurrence: None)
  Receive Date: 20110413
  Receipt Date: 20110401
  Transmission Date: 20111010
  Serious: Yes (Hospitalization)
  Sender: FDA-Public Use
  Company Number: PHHY2011CA27338

PATIENT
  Sex: Female

DRUGS (4)
  1. EXJADE [Suspect]
     Indication: MYELODYSPLASTIC SYNDROME TRANSFORMATION
     Dosage: 3 DF, QD
     Route: 048
  2. FENTANYL [Concomitant]
     Dosage: 25 MG, EVERY TWO DAYS
  3. MICARDIS [Concomitant]
  4. WATER PILLS [Concomitant]

REACTIONS (12)
  - HYPOTENSION [None]
  - DISORIENTATION [None]
  - INTERNATIONAL NORMALISED RATIO INCREASED [None]
  - ULCER [None]
  - BACK PAIN [None]
  - FATIGUE [None]
  - URINARY TRACT INFECTION [None]
  - RECTAL HAEMORRHAGE [None]
  - FALL [None]
  - SPINAL FRACTURE [None]
  - HEAD INJURY [None]
  - PAIN IN EXTREMITY [None]
